FAERS Safety Report 4330498-9 (Version None)
Quarter: 2004Q2

REPORT INFORMATION
  Report Type: 
  Country: None (occurrence: None)
  Receive Date: 20040401
  Receipt Date: 20040401
  Transmission Date: 20050107
  Serious: Yes (Life-Threatening, Hospitalization)
  Sender: FDA-Public Use
  Company Number: None

PATIENT
  Age: 49 Year
  Sex: Female
  Weight: 63.5036 kg

DRUGS (2)
  1. PAXIL CR [Suspect]
     Indication: ANXIETY
     Dosage: 1 PER DAY ORAL
     Route: 048
     Dates: start: 20040310, end: 20040316
  2. PAXIL CR [Suspect]
     Indication: DEPRESSION
     Dosage: 1 PER DAY ORAL
     Route: 048
     Dates: start: 20040310, end: 20040316

REACTIONS (1)
  - SUICIDE ATTEMPT [None]
